FAERS Safety Report 8196980-1 (Version None)
Quarter: 2012Q1

REPORT INFORMATION
  Report Type: 
  Country: None (occurrence: None)
  Receive Date: 20120309
  Receipt Date: 20120305
  Transmission Date: 20120608
  Serious: Yes (Death)
  Sender: FDA-Public Use
  Company Number: US-SANOFI-AVENTIS-2012SA015825

PATIENT

DRUGS (5)
  1. OXALIPLATIN [Suspect]
     Dosage: EVERY 14 DAYS AS A PART OF INDUCTION REGIMEN
     Route: 042
  2. FOLIC ACID [Concomitant]
     Dosage: 7 DAYS BEFORE CHEMOTHERAPY AND CONTINUING UNTIL 3 WEEKS AFTER LAST PEMETREXED DOSE.
  3. PEMETREXED [Suspect]
     Dosage: EVERY 14 DAYS AS A PART OF INDUCTION REGIMEN
     Route: 042
  4. DEXAMETHASONE [Concomitant]
     Indication: PROPHYLAXIS
  5. VITAMIN B-12 [Concomitant]
     Dosage: 7 DAYS BEFORE CHEMOTHERAPY AND CONTINUING UNTIL 3 WEEKS AFTER LAST PEMETREXED DOSE.

REACTIONS (1)
  - ACIDOSIS [None]
